FAERS Safety Report 6012959-X (Version None)
Quarter: 2008Q4

REPORT INFORMATION
  Report Type: 
  Country: None (occurrence: None)
  Receive Date: 20081219
  Receipt Date: 20080711
  Transmission Date: 20090506
  Serious: No
  Sender: FDA-Public Use
  Company Number: A0728142B

PATIENT
  Age: 37 Year
  Sex: Female

DRUGS (1)
  1. TRIZIVIR [Suspect]
     Indication: HIV INFECTION
     Dosage: 750MG PER DAY
     Route: 048
     Dates: start: 20060428, end: 20060725

REACTIONS (2)
  - DRUG EXPOSURE DURING PREGNANCY [None]
  - VULVOVAGINAL CANDIDIASIS [None]
